FAERS Safety Report 9652808 (Version 1)
Quarter: 2013Q4

REPORT INFORMATION
  Report Type: Spontaneous
  Country: US (occurrence: US)
  Receive Date: 20131029
  Receipt Date: 20131029
  Transmission Date: 20140711
  Serious: Yes (Death, Other)
  Sender: FDA-Public Use
  Company Number: US-INCYTE CORPORATION-2013IN002513

PATIENT
  Age: 75 Year
  Sex: Female

DRUGS (7)
  1. JAKAFI [Suspect]
     Indication: MYELOFIBROSIS
     Dosage: 15 MG, BID
     Route: 048
     Dates: start: 20130731
  2. TRAMADOL [Concomitant]
  3. GABAPENTIN [Concomitant]
  4. METFORMIN [Concomitant]
  5. FINASTERIDE [Concomitant]
  6. ALLOPURINOL [Concomitant]
  7. VITAMIN D3 [Concomitant]

REACTIONS (3)
  - Death [Fatal]
  - Hip fracture [Unknown]
  - Fall [Unknown]
